FAERS Safety Report 7243550-5 (Version None)
Quarter: 2011Q1

REPORT INFORMATION
  Report Type: 
  Country: None (occurrence: None)
  Receive Date: 20110125
  Receipt Date: 20110116
  Transmission Date: 20110831
  Serious: Yes (Other)
  Sender: FDA-Public Use
  Company Number: B0694390A

PATIENT

DRUGS (2)
  1. PATCH (UNSPECIFIED) [Concomitant]
     Route: 065
  2. NICOTINE POLACRILEX [Suspect]
     Indication: DRUG WITHDRAWAL MAINTENANCE THERAPY
     Route: 002

REACTIONS (4)
  - HYPERHIDROSIS [None]
  - ABNORMAL DREAMS [None]
  - CRYING [None]
  - AGGRESSION [None]
